FAERS Safety Report 7436810-6 (Version None)
Quarter: 2011Q2

REPORT INFORMATION
  Report Type: 
  Country: None (occurrence: None)
  Receive Date: 20110418
  Receipt Date: 20110402
  Transmission Date: 20111010
  Serious: Yes (Death, Hospitalization)
  Sender: FDA-Public Use
  Company Number: 2011AP000655

PATIENT
  Age: 33 Year
  Sex: Female

DRUGS (3)
  1. FLUCONAZOLE [Suspect]
     Indication: ANTIFUNGAL PROPHYLAXIS
  2. TRETINOIN [Suspect]
     Indication: ACUTE PROMYELOCYTIC LEUKAEMIA
     Dosage: 45 MG/M2 QD, PO
     Route: 048
  3. POSACONAZOLE [Suspect]
     Indication: ANTIFUNGAL PROPHYLAXIS
     Route: 048

REACTIONS (11)
  - DIARRHOEA [None]
  - GASTROINTESTINAL TOXICITY [None]
  - MULTI-ORGAN FAILURE [None]
  - DRUG INTERACTION [None]
  - SEPTIC SHOCK [None]
  - HEPATOTOXICITY [None]
  - ABDOMINAL DISTENSION [None]
  - DYSPNOEA [None]
  - BILIRUBIN CONJUGATED INCREASED [None]
  - ABDOMINAL PAIN [None]
  - METABOLIC ACIDOSIS [None]
